FAERS Safety Report 15204531 (Version 1)
Quarter: 2018Q3

REPORT INFORMATION
  Report Type: Spontaneous
  Country: US (occurrence: US)
  Receive Date: 20180628
  Receipt Date: 20180628
  Transmission Date: 20181010
  Serious: No
  Sender: FDA-Public Use
  Company Number: None

PATIENT
  Age: 64 Year
  Sex: Female
  Weight: 83.61 kg

DRUGS (2)
  1. CAPECITABINE 500 MG TABLETS [Concomitant]
     Active Substance: CAPECITABINE
     Dates: start: 20180417, end: 20180627
  2. CAPECITABINE. [Suspect]
     Active Substance: CAPECITABINE
     Indication: RECTAL CANCER
     Route: 048
     Dates: start: 20180417, end: 20180627

REACTIONS (1)
  - Disease progression [None]
